FAERS Safety Report 6855940-0 (Version None)
Quarter: 2010Q3

REPORT INFORMATION
  Report Type: 
  Country: None (occurrence: None)
  Receive Date: 20100716
  Receipt Date: 20100716
  Transmission Date: 20110219
  Serious: Yes (Other)
  Sender: FDA-Public Use
  Company Number: None

PATIENT
  Age: 73 Year
  Sex: Female
  Weight: 65.7716 kg

DRUGS (2)
  1. LEVAQUIN [Suspect]
     Indication: PNEUMONIA
     Dosage: 10 1 TABLET DAILY
     Dates: start: 20100619
  2. LEVAQUIN [Suspect]
     Indication: SINUSITIS
     Dosage: 10 1 TABLET DAILY
     Dates: start: 20100619

REACTIONS (2)
  - ARTHRALGIA [None]
  - TENDON RUPTURE [None]
